FAERS Safety Report 10175508 (Version 1)
Quarter: 2014Q2

REPORT INFORMATION
  Report Type: Spontaneous
  Country: CA (occurrence: CA)
  Receive Date: 20140516
  Receipt Date: 20140516
  Transmission Date: 20141212
  Serious: Yes (Hospitalization, Other)
  Sender: FDA-Public Use
  Company Number: CA-AMGEN INC.-CANSP2014034749

PATIENT
  Age: 66 Year
  Sex: Female

DRUGS (2)
  1. PROLIA [Suspect]
     Indication: OSTEOPOROSIS POSTMENOPAUSAL
     Dosage: 60 MG, Q6MO
     Route: 058
     Dates: start: 20110829
  2. COUMADIN                           /00014802/ [Concomitant]
     Dosage: UNK

REACTIONS (6)
  - Brain neoplasm [Recovered/Resolved with Sequelae]
  - Aggression [Unknown]
  - Speech disorder [Unknown]
  - Depression [Unknown]
  - Asthenia [Unknown]
  - Mobility decreased [Unknown]
